FAERS Safety Report 19749425 (Version 1)
Quarter: 2021Q3

REPORT INFORMATION
  Report Type: Spontaneous
  Country: US (occurrence: US)
  Receive Date: 20210825
  Receipt Date: 20210825
  Transmission Date: 20211014
  Serious: Yes (Disabling, Other)
  Sender: FDA-Public Use
  Company Number: None

PATIENT
  Age: 37 Year
  Sex: Female
  Weight: 74.84 kg

DRUGS (2)
  1. VITAMIN D [Concomitant]
     Active Substance: VITAMIN D NOS
  2. PARAGARD T 380A [Suspect]
     Active Substance: COPPER
     Dates: start: 20171025, end: 20210803

REACTIONS (3)
  - Pain [None]
  - Device breakage [None]
  - Haemorrhage [None]

NARRATIVE: CASE EVENT DATE: 20210803
